FAERS Safety Report 18591191 (Version 1)
Quarter: 2020Q4

REPORT INFORMATION
  Report Type: Spontaneous
  Country: DE (occurrence: DE)
  Receive Date: 20201208
  Receipt Date: 20201208
  Transmission Date: 20210114
  Serious: Yes (Other)
  Sender: FDA-Public Use
  Company Number: DE-MYLANLABS-2020M1099635

PATIENT
  Sex: Female
  Weight: 98 kg

DRUGS (1)
  1. TRAMADOL. [Suspect]
     Active Substance: TRAMADOL
     Indication: PRODUCT USED FOR UNKNOWN INDICATION
     Dosage: 200 MILLIGRAM, QD, 100 MG, 2 DF DAILY
     Route: 065
     Dates: start: 20151212

REACTIONS (3)
  - Dizziness [Unknown]
  - Dependence [Unknown]
  - Visual impairment [Unknown]
